FAERS Safety Report 13506045 (Version 1)
Quarter: 2017Q2

REPORT INFORMATION
  Report Type: Spontaneous
  Country: US (occurrence: US)
  Receive Date: 20170502
  Receipt Date: 20170502
  Transmission Date: 20170830
  Serious: No
  Sender: FDA-Public Use
  Company Number: US-ROCHE-1462753

PATIENT
  Sex: Female

DRUGS (1)
  1. AVASTIN [Suspect]
     Active Substance: BEVACIZUMAB
     Indication: HISTOPLASMOSIS
     Route: 047

REACTIONS (2)
  - Eye disorder [Unknown]
  - Off label use [Unknown]

NARRATIVE: CASE EVENT DATE: 2011
